FAERS Safety Report 15659089 (Version 1)
Quarter: 2018Q4

REPORT INFORMATION
  Report Type: Spontaneous
  Country: ES (occurrence: ES)
  Receive Date: 20181127
  Receipt Date: 20181127
  Transmission Date: 20190205
  Serious: Yes (Hospitalization, Other)
  Sender: FDA-Public Use
  Company Number: ES-SA-2018SA316517

PATIENT
  Age: 86 Year
  Sex: Female

DRUGS (5)
  1. DISTRANEURINE [CLOMETHIAZOLE] [Concomitant]
     Dosage: 192 MG, QD
     Route: 048
  2. ATORVASTATINA [ATORVASTATIN] [Concomitant]
     Dosage: 20 MG, QD
     Route: 048
  3. VANDRAL [Concomitant]
     Active Substance: VENLAFAXINE HYDROCHLORIDE
     Dosage: 150 MG, QD
     Route: 048
  4. INDAPAMIDE. [Suspect]
     Active Substance: INDAPAMIDE
     Indication: HYPERTENSION
     Dosage: 1.5 MG, QD
     Route: 048
     Dates: start: 20140421, end: 20180115
  5. MASTICAL D [Concomitant]
     Dosage: 1 DF, QD
     Route: 048

REACTIONS (1)
  - Hypokalaemia [Recovered/Resolved]

NARRATIVE: CASE EVENT DATE: 201801
